FAERS Safety Report 18083892 (Version 2)
Quarter: 2020Q3

REPORT INFORMATION
  Report Type: Report from Study
  Country: CN (occurrence: CN)
  Receive Date: 20200728
  Receipt Date: 20200804
  Transmission Date: 20201103
  Serious: Yes (Hospitalization)
  Sender: FDA-Public Use
  Company Number: CN-ROCHE-2642976

PATIENT
  Age: 24 Year
  Sex: Female
  Weight: 40.5 kg

DRUGS (6)
  1. BLINDED TOCILIZUMAB [Suspect]
     Active Substance: TOCILIZUMAB
     Indication: RHEUMATOID ARTHRITIS
     Dosage: DATE OF MOST RECENT DOSE OF BLINDED TOCILIZUMAB PRIOR TO AE ONSET: 25/MAY/2020
     Route: 058
     Dates: start: 20191205
  2. TOCILIZUMAB. [Suspect]
     Active Substance: TOCILIZUMAB
     Indication: RHEUMATOID ARTHRITIS
     Dosage: DATE OF MOST RECENT DOSE OF OPEN LABEL TOCILIZUMAB PRIOR TO AE ONSET: 02/JUL/2020
     Route: 058
     Dates: start: 20200605
  3. METHOTREXATE (METHOTREXATE SODIUM) [Suspect]
     Active Substance: METHOTREXATE SODIUM
     Indication: RHEUMATOID ARTHRITIS
     Dosage: DATE OF MOST RECENT DOSE OF BLINDED METHOTREXATE PRIOR TO AE ONSET: 30/MAY/2020
     Route: 048
     Dates: start: 20191207
  4. FOLIC ACID. [Concomitant]
     Active Substance: FOLIC ACID
     Dates: start: 2018
  5. METHOTREXATE. [Suspect]
     Active Substance: METHOTREXATE
     Indication: RHEUMATOID ARTHRITIS
     Dosage: DATE OF MOST RECENT DOSE OF OPEN LABEL METHOTREXATE PRIOR TO AE ONSET: 11/JUL/2020
     Route: 048
     Dates: start: 20200606
  6. CALCIUM CARBONATE;VITAMIN D3 [Concomitant]
     Dates: start: 201701

REACTIONS (1)
  - Fibroadenoma of breast [Recovering/Resolving]

NARRATIVE: CASE EVENT DATE: 20200610
